FAERS Safety Report 13995215 (Version 1)
Quarter: 2017Q3

REPORT INFORMATION
  Report Type: Spontaneous
  Country: CN (occurrence: CN)
  Receive Date: 20170921
  Receipt Date: 20170921
  Transmission Date: 20171128
  Serious: Yes (Other)
  Sender: FDA-Public Use
  Company Number: CN-TAKEDA-2017MPI008045

PATIENT

DRUGS (5)
  1. ADRIAMYCIN [Suspect]
     Active Substance: DOXORUBICIN HYDROCHLORIDE
     Indication: PLASMA CELL MYELOMA
     Dosage: UNK
     Route: 065
  2. MELPHALAN. [Suspect]
     Active Substance: MELPHALAN
     Indication: PLASMA CELL MYELOMA
     Dosage: UNK
     Route: 065
  3. CYCLOPHOSPHAMIDE. [Suspect]
     Active Substance: CYCLOPHOSPHAMIDE
     Indication: PLASMA CELL MYELOMA
     Dosage: UNK
     Route: 065
  4. VELCADE [Suspect]
     Active Substance: BORTEZOMIB
     Indication: PLASMA CELL MYELOMA
     Dosage: UNK
     Route: 065
  5. DEXAMETHASONE. [Suspect]
     Active Substance: DEXAMETHASONE
     Indication: PLASMA CELL MYELOMA
     Dosage: UNK
     Route: 065

REACTIONS (20)
  - Neurotoxicity [Recovering/Resolving]
  - Thrombosis [Unknown]
  - Deafness neurosensory [Unknown]
  - Diarrhoea [Recovered/Resolved]
  - Herpes zoster [Unknown]
  - Rash [Unknown]
  - Thrombocytopenia [Unknown]
  - Lung infection [Unknown]
  - Alanine aminotransferase increased [Recovering/Resolving]
  - Fatigue [Unknown]
  - Constipation [Recovered/Resolved]
  - Abdominal discomfort [Recovered/Resolved]
  - Intestinal obstruction [Recovered/Resolved]
  - Atrial fibrillation [Unknown]
  - Neuropathy peripheral [Recovering/Resolving]
  - Oedema [Unknown]
  - Asthenia [Unknown]
  - Aspartate aminotransferase increased [Recovering/Resolving]
  - Nausea [Recovered/Resolved]
  - Abdominal distension [Recovered/Resolved]
